FAERS Safety Report 8098067-5 (Version None)
Quarter: 2012Q1

REPORT INFORMATION
  Report Type: 
  Country: None (occurrence: None)
  Receive Date: 20120128
  Receipt Date: 20110806
  Transmission Date: 20120608
  Serious: No
  Sender: FDA-Public Use
  Company Number: US-ABBOTT-11P-163-0844768-00

PATIENT
  Age: 40 Year
  Sex: Female

DRUGS (4)
  1. LEVOTHYROXINE SODIUM [Concomitant]
     Indication: PRODUCT USED FOR UNKNOWN INDICATION
  2. NORCO [Concomitant]
     Indication: PAIN
     Dosage: PRN UP TO 3 DAILY
  3. METHOTREXATE [Concomitant]
     Indication: PRODUCT USED FOR UNKNOWN INDICATION
     Dosage: 6 WEEKLY
  4. HUMIRA [Suspect]
     Indication: RHEUMATOID ARTHRITIS
     Dates: start: 20110512

REACTIONS (5)
  - OEDEMA PERIPHERAL [None]
  - DRUG INEFFECTIVE [None]
  - ARTHRALGIA [None]
  - CHONDROPATHY [None]
  - JOINT SWELLING [None]
